FAERS Safety Report 24818453 (Version 1)
Quarter: 2025Q1

REPORT INFORMATION
  Report Type: Spontaneous
  Country: CA (occurrence: CA)
  Receive Date: 20250108
  Receipt Date: 20250108
  Transmission Date: 20250409
  Serious: Yes (Other)
  Sender: TEVA
  Company Number: CA-TEVA-VS-3284364

PATIENT
  Age: 34 Year
  Sex: Female

DRUGS (1)
  1. SUMATRIPTAN [Suspect]
     Active Substance: SUMATRIPTAN
     Indication: Headache
     Route: 048

REACTIONS (3)
  - Hyperhidrosis [Unknown]
  - Throat tightness [Unknown]
  - Pharyngeal swelling [Unknown]
